FAERS Safety Report 5573795-1 (Version None)
Quarter: 2007Q4

REPORT INFORMATION
  Report Type: 
  Country: None (occurrence: None)
  Receive Date: 20071226
  Receipt Date: 20071214
  Transmission Date: 20080405
  Serious: Yes (Death)
  Sender: FDA-Public Use
  Company Number: JP-PFIZER INC-2007090667

PATIENT
  Sex: Female
  Weight: 48 kg

DRUGS (6)
  1. CAMPTO [Suspect]
     Indication: NON-SMALL CELL LUNG CANCER
     Dosage: DAILY DOSE:20MG
     Route: 042
     Dates: start: 20071002, end: 20071016
  2. CAMPTO [Suspect]
     Dosage: DAILY DOSE:10MG
     Route: 042
     Dates: start: 20071017, end: 20071017
  3. CRAVIT [Concomitant]
     Indication: ABDOMINAL PAIN
     Dosage: TEXT:1DF
     Route: 048
     Dates: start: 20071018, end: 20071018
  4. PANSPORIN [Concomitant]
     Indication: ABDOMINAL PAIN
     Dosage: DAILY DOSE:2GRAM
     Route: 042
     Dates: start: 20071019, end: 20071019
  5. PRIMPERAN INJ [Concomitant]
     Indication: ABDOMINAL DISTENSION
     Dosage: TEXT:1DF
     Route: 042
     Dates: start: 20071019, end: 20071019
  6. BUSCOPAN [Concomitant]
     Indication: ABDOMINAL PAIN
     Dosage: TEXT:1DF
     Route: 048
     Dates: start: 20071019, end: 20071019

REACTIONS (4)
  - DIARRHOEA [None]
  - LEUKOPENIA [None]
  - NEUTROPENIA [None]
  - SHOCK [None]
